FAERS Safety Report 4945096-3 (Version None)
Quarter: 2006Q1

REPORT INFORMATION
  Report Type: 
  Country: None (occurrence: None)
  Receive Date: 20060316
  Receipt Date: 20051130
  Transmission Date: 20060701
  Serious: Yes (Other)
  Sender: FDA-Public Use
  Company Number: 2005AP06559

PATIENT
  Age: 14220 Day
  Sex: Male
  Weight: 95 kg

DRUGS (9)
  1. OMEPRAL [Suspect]
     Indication: GASTRITIS
     Route: 048
     Dates: start: 20020529, end: 20051130
  2. OMEPRAL [Interacting]
     Indication: REFLUX OESOPHAGITIS
     Route: 048
     Dates: start: 20020529, end: 20051130
  3. CALBLOCK [Suspect]
     Indication: HYPERTENSION
     Route: 048
     Dates: start: 20051022, end: 20051112
  4. CALBLOCK [Suspect]
     Route: 048
     Dates: start: 20051112
  5. LIPITOR [Suspect]
     Indication: HYPERCHOLESTEROLAEMIA
     Route: 048
     Dates: start: 20051022, end: 20051130
  6. NIVADIL [Concomitant]
     Indication: HYPERTENSION
     Route: 048
     Dates: start: 20001216, end: 20040721
  7. NIVADIL [Concomitant]
     Route: 048
     Dates: start: 20040721, end: 20050927
  8. OLMETEC [Concomitant]
     Indication: HYPERTENSION
     Route: 048
     Dates: start: 20050927
  9. LANSOPRAZOLE [Concomitant]
     Dates: start: 20001216, end: 20020529

REACTIONS (5)
  - ANXIETY [None]
  - DIARRHOEA [None]
  - DIZZINESS [None]
  - DRUG INTERACTION [None]
  - ROAD TRAFFIC ACCIDENT [None]
